FAERS Safety Report 5734525-3 (Version None)
Quarter: 2008Q2

REPORT INFORMATION
  Report Type: 
  Country: None (occurrence: None)
  Receive Date: 20080512
  Receipt Date: 20080508
  Transmission Date: 20081010
  Serious: Yes (Death, Hospitalization)
  Sender: FDA-Public Use
  Company Number: PHBS2008GB04328

PATIENT
  Age: 67 Year
  Sex: Male

DRUGS (3)
  1. TASMAR [Concomitant]
  2. MADOPAR [Concomitant]
  3. BROMOCRIPTINE MESYLATE [Suspect]
     Indication: PARKINSON'S DISEASE
     Dosage: 20 MG, QID
     Route: 048

REACTIONS (6)
  - CHEST DISCOMFORT [None]
  - CLOSTRIDIAL INFECTION [None]
  - EFFUSION [None]
  - PNEUMONIA [None]
  - PNEUMOTHORAX [None]
  - STAPHYLOCOCCAL INFECTION [None]
